FAERS Safety Report 10206564 (Version 1)
Quarter: 2014Q2

REPORT INFORMATION
  Report Type: Spontaneous
  Country: US (occurrence: None)
  Receive Date: 20140527
  Receipt Date: 20140527
  Transmission Date: 20141212
  Serious: Yes (Disabling)
  Sender: FDA-Public Use
  Company Number: None

PATIENT
  Age: 54 Year
  Sex: Female
  Weight: 97.52 kg

DRUGS (2)
  1. DULOXETINE [Suspect]
     Indication: FIBROMYALGIA
     Dosage: 1 PER DAY
     Dates: start: 20140301, end: 20140331
  2. DULOXETINE [Suspect]
     Indication: DEPRESSION
     Dosage: 1 PER DAY
     Dates: start: 20140301, end: 20140331

REACTIONS (5)
  - Pain [None]
  - Hypersomnia [None]
  - Emotional disorder [None]
  - Drug ineffective [None]
  - Product substitution issue [None]
